FAERS Safety Report 7796663-3 (Version None)
Quarter: 2011Q4

REPORT INFORMATION
  Report Type: 
  Country: None (occurrence: None)
  Receive Date: 20111005
  Receipt Date: 20110926
  Transmission Date: 20120403
  Serious: Yes (Other)
  Sender: FDA-Public Use
  Company Number: US-BAYER-2011-093725

PATIENT
  Age: 17 Year
  Sex: Female
  Weight: 68.934 kg

DRUGS (9)
  1. METOPROLOL TARTRATE [Concomitant]
     Indication: MITRAL VALVE PROLAPSE
     Dosage: 25 MG, UNK
  2. YAZ [Suspect]
     Indication: MENORRHAGIA
  3. YAZ [Suspect]
  4. YAZ [Suspect]
     Indication: PREMENSTRUAL SYNDROME
  5. CITALOPRAM HYDROBROMIDE [Concomitant]
     Indication: PREMENSTRUAL SYNDROME
     Dosage: 10 MG, UNK
  6. NORGESTIMATE AND ETHINYL ESTRADIOL [Concomitant]
     Indication: ORAL CONTRACEPTION
     Dosage: UNK UNK, QD
     Route: 048
  7. YAZ [Suspect]
     Indication: ORAL CONTRACEPTION
     Dosage: UNK
     Dates: start: 20080201, end: 20090401
  8. PONSTEL [Concomitant]
     Indication: DYSMENORRHOEA
     Dosage: 250 MG, PRN
     Dates: start: 20080205, end: 20090319
  9. NORGESTIMATE AND ETHINYL ESTRADIOL [Concomitant]
     Indication: MENSTRUATION IRREGULAR

REACTIONS (6)
  - BILIARY DYSKINESIA [None]
  - ABDOMINAL PAIN UPPER [None]
  - CHOLECYSTECTOMY [None]
  - CHEST PAIN [None]
  - CHOLECYSTITIS ACUTE [None]
  - ABDOMINAL PAIN [None]
